FAERS Safety Report 6951049 (Version 2)
Quarter: 2014Q1

REPORT INFORMATION
  Report Type: Spontaneous
  Country: US (occurrence: None)
  Receive Date: 20090227
  Receipt Date: 20140304
  Transmission Date: 20141002
  Serious: Yes (Hospitalization, Other)
  Sender: FDA-Public Use
  Company Number: RB-4213-2008

PATIENT
  Sex: Male
  Weight: 3.54 kg

DRUGS (2)
  1. SUBOXONE [Suspect]
     Indication: DRUG DEPENDENCE
     Dosage: 1.5 MG TRANSPLACENTAL
     Route: 064
     Dates: start: 20070201, end: 20080128
  2. SUBUTEX [Suspect]
     Indication: DRUG DEPENDENCE
     Dosage: 1.5 MG TRANSPLACENTAL, 6 MG QD TRANSPLACENTAL
     Route: 064
     Dates: start: 20080129, end: 200803

REACTIONS (2)
  - Drug withdrawal syndrome neonatal [None]
  - Foetal exposure during pregnancy [None]
